FAERS Safety Report 4605211-8 (Version None)
Quarter: 2005Q1

REPORT INFORMATION
  Report Type: 
  Country: None (occurrence: None)
  Receive Date: 20050310
  Receipt Date: 20020422
  Transmission Date: 20050727
  Serious: No
  Sender: FDA-Public Use
  Company Number: US-BRISTOL-MYERS SQUIBB COMPANY-11847621

PATIENT
  Age: 21 Year
  Sex: Female

DRUGS (3)
  1. MONISTAT 1 COMBINATION PACK [Suspect]
     Indication: VAGINAL MYCOSIS
     Route: 067
     Dates: start: 20020421, end: 20020421
  2. CONTRACEPTIVE [Concomitant]
  3. AZO-STANDARD [Concomitant]

REACTIONS (3)
  - CONDITION AGGRAVATED [None]
  - GENITAL PRURITUS FEMALE [None]
  - VULVAL OEDEMA [None]
